FAERS Safety Report 17438614 (Version 18)
Quarter: 2022Q1

REPORT INFORMATION
  Report Type: Report from Study
  Country: US (occurrence: US)
  Receive Date: 20200220
  Receipt Date: 20220324
  Transmission Date: 20220423
  Serious: Yes (Hospitalization, Other)
  Sender: FDA-Public Use
  Company Number: US-SHIRE-US202006432

PATIENT
  Age: 57 Year
  Sex: Female
  Weight: 91 kg

DRUGS (49)
  1. HUMAN IMMUNOGLOBULIN G [Suspect]
     Active Substance: HUMAN IMMUNOGLOBULIN G
     Indication: Immunodeficiency common variable
     Dosage: 12 GRAM, 1/WEEK
     Route: 058
     Dates: start: 20170217
  2. HUMAN IMMUNOGLOBULIN G [Suspect]
     Active Substance: HUMAN IMMUNOGLOBULIN G
     Dosage: 12 GRAM, 1/WEEK
     Route: 058
     Dates: start: 20170802
  3. HUMAN IMMUNOGLOBULIN G [Suspect]
     Active Substance: HUMAN IMMUNOGLOBULIN G
     Dosage: 12 GRAM, 1/WEEK
     Route: 058
     Dates: start: 20170804
  4. HUMAN IMMUNOGLOBULIN G [Suspect]
     Active Substance: HUMAN IMMUNOGLOBULIN G
     Dosage: 12 GRAM, 1/WEEK
     Route: 058
     Dates: start: 20170804
  5. DIPHENHYDRAMINE [Concomitant]
     Active Substance: DIPHENHYDRAMINE
  6. ACETAMINOPHEN [Concomitant]
     Active Substance: ACETAMINOPHEN
  7. PNEUMOVAX 23 [Concomitant]
     Active Substance: PNEUMOCOCCAL VACCINE, POLYVALENT 23
  8. XANAX [Concomitant]
     Active Substance: ALPRAZOLAM
  9. MAXALT [Concomitant]
     Active Substance: RIZATRIPTAN BENZOATE
  10. POTASSIUM CHLORIDE [Concomitant]
     Active Substance: POTASSIUM CHLORIDE
  11. MESALAMINE [Concomitant]
     Active Substance: MESALAMINE
  12. EPINEPHRINE [Concomitant]
     Active Substance: EPINEPHRINE
  13. AZITHROMYCIN [Concomitant]
     Active Substance: AZITHROMYCIN
  14. NYSTATIN [Concomitant]
     Active Substance: NYSTATIN
  15. CARAFATE [Concomitant]
     Active Substance: SUCRALFATE
  16. ROWASA [Concomitant]
     Active Substance: MESALAMINE
  17. BREO ELLIPTA [Concomitant]
     Active Substance: FLUTICASONE FUROATE\VILANTEROL TRIFENATATE
  18. LASIX [Concomitant]
     Active Substance: FUROSEMIDE
  19. ALKA-SELTZER [Concomitant]
     Active Substance: ANHYDROUS CITRIC ACID\ASPIRIN\SODIUM BICARBONATE
  20. PEPTO-BISMOL [Concomitant]
     Active Substance: BISMUTH SUBSALICYLATE
  21. FLUCONAZOLE [Concomitant]
     Active Substance: FLUCONAZOLE
  22. HUMULIN N [Concomitant]
     Active Substance: INSULIN HUMAN
  23. PREDNISONE [Concomitant]
     Active Substance: PREDNISONE
  24. ASPIRIN [Concomitant]
     Active Substance: ASPIRIN
  25. GABAPENTIN [Concomitant]
     Active Substance: GABAPENTIN
  26. ALBUTEROL [Concomitant]
     Active Substance: ALBUTEROL
  27. ULORIC [Concomitant]
     Active Substance: FEBUXOSTAT
  28. CLONIDINE [Concomitant]
     Active Substance: CLONIDINE
  29. MINOCYCLINE [Concomitant]
     Active Substance: MINOCYCLINE HYDROCHLORIDE
  30. IMODIUM [Concomitant]
     Active Substance: LOPERAMIDE HYDROCHLORIDE
  31. LIDOCAINE AND PRILOCAINE [Concomitant]
     Active Substance: LIDOCAINE\PRILOCAINE
  32. LIDODERM [Concomitant]
     Active Substance: LIDOCAINE
     Dosage: UNK
  33. KETOROLAC TROMETHAMINE [Concomitant]
     Active Substance: KETOROLAC TROMETHAMINE
  34. CEFIXIME [Concomitant]
     Active Substance: CEFIXIME
  35. MIGRANAL [Concomitant]
     Active Substance: DIHYDROERGOTAMINE MESYLATE
  36. SODIUM CHLORIDE [Concomitant]
     Active Substance: SODIUM CHLORIDE
  37. CINNAMON\HERBALS [Concomitant]
     Active Substance: CINNAMON\HERBALS
  38. HYDROCORTISONE [Concomitant]
     Active Substance: HYDROCORTISONE
  39. ALOE [Concomitant]
     Active Substance: ALOE
  40. MIRALAX [Concomitant]
     Active Substance: POLYETHYLENE GLYCOL 3350
  41. LIDOCAINE [Concomitant]
     Active Substance: LIDOCAINE
  42. NOVOLOG [Concomitant]
     Active Substance: INSULIN ASPART
  43. TESSALON [Concomitant]
     Active Substance: BENZONATATE
  44. VITAMIN D NOS [Concomitant]
     Active Substance: VITAMIN D NOS
  45. VENTOLIN [Concomitant]
     Active Substance: ALBUTEROL SULFATE
  46. FLUZONE QUADRIVALENT NOS [Concomitant]
     Active Substance: INFLUENZA A VIRUS A/CALIFORNIA/7/2009 X-179A (H1N1) ANTIGEN (FORMALDEHYDE INACTIVATED)\INFLUENZA A V
  47. VENTOLIN HFA [Concomitant]
     Active Substance: ALBUTEROL SULFATE
  48. VITAMIN A AND D [Concomitant]
     Active Substance: LANOLIN\PETROLATUM
  49. COLD COUGH [Concomitant]

REACTIONS (49)
  - Asthma [Unknown]
  - Hyponatraemia [Unknown]
  - Blood sodium decreased [Unknown]
  - Lip oedema [Unknown]
  - Facial bones fracture [Unknown]
  - Oedema peripheral [Unknown]
  - Dyspnoea [Unknown]
  - Weight increased [Unknown]
  - Kidney infection [Unknown]
  - Device dislocation [Unknown]
  - Cardiac failure [Unknown]
  - Haemorrhage [Unknown]
  - Reflux nephropathy [Unknown]
  - Injection site extravasation [Unknown]
  - Bone disorder [Unknown]
  - Respiratory tract infection viral [Unknown]
  - Blood glucose decreased [Unknown]
  - Blood potassium abnormal [Unknown]
  - Blood pressure fluctuation [Unknown]
  - Cardiac disorder [Unknown]
  - Fluid imbalance [Unknown]
  - Fluid retention [Unknown]
  - Blood glucose increased [Unknown]
  - Secretion discharge [Unknown]
  - Renal cyst [Unknown]
  - Drug hypersensitivity [Unknown]
  - Exostosis [Unknown]
  - Sinusitis [Unknown]
  - Fall [Unknown]
  - Urticaria [Unknown]
  - Joint injury [Unknown]
  - Gastroenteritis viral [Unknown]
  - Urinary tract infection [Unknown]
  - Ligament injury [Unknown]
  - Bladder disorder [Unknown]
  - Road traffic accident [Unknown]
  - Contusion [Unknown]
  - Infusion site swelling [Unknown]
  - Arthralgia [Unknown]
  - Central venous catheter removal [Unknown]
  - Gout [Unknown]
  - Post-traumatic stress disorder [Unknown]
  - Ulcer [Unknown]
  - Condition aggravated [Unknown]
  - Obstructive airways disorder [Unknown]
  - Sinus congestion [Unknown]
  - Balance disorder [Unknown]
  - Ear infection [Unknown]
  - Product dose omission issue [Unknown]

NARRATIVE: CASE EVENT DATE: 20200131
